FAERS Safety Report 8477874-0 (Version None)
Quarter: 2012Q2

REPORT INFORMATION
  Report Type: 
  Country: None (occurrence: None)
  Receive Date: 20120629
  Receipt Date: 20120622
  Transmission Date: 20120825
  Serious: Yes (Hospitalization)
  Sender: FDA-Public Use
  Company Number: FR-B.I. PHARMACEUTICALS,INC./RIDGEFIELD-2012-FF-00804FF

PATIENT
  Sex: Female

DRUGS (13)
  1. KETOPROFEN [Suspect]
     Dates: start: 20120424
  2. PYOSTACINE [Suspect]
     Dates: start: 20120424
  3. OXYCONTIN [Suspect]
     Dates: start: 20120424
  4. ZANTAC [Suspect]
     Dates: start: 20120423
  5. VANCOMYCIN [Suspect]
     Dates: start: 20120424
  6. CELEBREX [Suspect]
     Dates: start: 20120424
  7. ONDANSETRON HCL [Suspect]
     Dates: start: 20120424
  8. ERYTHROMYCIN [Suspect]
     Dates: start: 20120425
  9. ATARAX [Suspect]
     Dates: start: 20120423
  10. LYRICA [Suspect]
     Dates: start: 20120424
  11. ACUPAN [Suspect]
     Dates: start: 20120424
  12. PRADAXA [Suspect]
     Dates: start: 20120425
  13. OXYCODONE HCL [Suspect]
     Dates: start: 20120424

REACTIONS (2)
  - ACUTE GENERALISED EXANTHEMATOUS PUSTULOSIS [None]
  - LIVER INJURY [None]
